FAERS Safety Report 6218752-7 (Version None)
Quarter: 2009Q2

REPORT INFORMATION
  Report Type: 
  Country: None (occurrence: None)
  Receive Date: 20090608
  Receipt Date: 20090527
  Transmission Date: 20091009
  Serious: Yes (Other)
  Sender: FDA-Public Use
  Company Number: FR-AVENTIS-200911986FR

PATIENT
  Age: 68 Year
  Sex: Male

DRUGS (14)
  1. LOVENOX [Suspect]
     Indication: THROMBOSIS PROPHYLAXIS
     Route: 058
     Dates: start: 20081107, end: 20081219
  2. DI-HYDAN [Suspect]
     Indication: DRUG USE FOR UNKNOWN INDICATION
     Route: 048
     Dates: start: 20081107, end: 20081219
  3. NIMOTOP [Suspect]
     Indication: DRUG USE FOR UNKNOWN INDICATION
     Route: 048
     Dates: start: 20081107, end: 20081205
  4. NIMOTOP [Suspect]
     Route: 048
     Dates: start: 20081210, end: 20081215
  5. TAHOR [Suspect]
     Indication: DRUG USE FOR UNKNOWN INDICATION
     Route: 048
     Dates: start: 20081110, end: 20081219
  6. PANTOPRAZOLE SODIUM [Suspect]
     Indication: DRUG USE FOR UNKNOWN INDICATION
     Route: 048
     Dates: start: 20081118, end: 20081205
  7. MOPRAL [Suspect]
     Indication: DRUG USE FOR UNKNOWN INDICATION
     Route: 048
     Dates: start: 20081205, end: 20081219
  8. XATRAL                             /00975301/ [Concomitant]
     Indication: BENIGN PROSTATIC HYPERPLASIA
     Route: 048
  9. XYZAL [Concomitant]
     Indication: DRUG USE FOR UNKNOWN INDICATION
     Route: 048
  10. POLARAMINE                         /00043702/ [Concomitant]
     Indication: DRUG USE FOR UNKNOWN INDICATION
  11. PARACETAMOL [Concomitant]
     Indication: DRUG USE FOR UNKNOWN INDICATION
     Dates: start: 20081118, end: 20081205
  12. CIPROFLOXACIN HCL [Concomitant]
     Indication: DRUG USE FOR UNKNOWN INDICATION
     Dates: start: 20081115, end: 20081117
  13. TRAMADOL HCL [Concomitant]
     Indication: DRUG USE FOR UNKNOWN INDICATION
     Dates: start: 20081201, end: 20081205
  14. CORVASAL                           /00547101/ [Concomitant]
     Indication: DRUG USE FOR UNKNOWN INDICATION
     Dates: start: 20081109, end: 20081114

REACTIONS (1)
  - DRUG RASH WITH EOSINOPHILIA AND SYSTEMIC SYMPTOMS [None]
